FAERS Safety Report 5472543-3 (Version None)
Quarter: 2007Q4

REPORT INFORMATION
  Report Type: 
  Country: None (occurrence: None)
  Receive Date: 20071001
  Receipt Date: 20070920
  Transmission Date: 20080405
  Serious: Yes (Other)
  Sender: FDA-Public Use
  Company Number: US-BAYER-200713046BCC

PATIENT
  Age: 81 Year
  Sex: Female
  Weight: 60 kg

DRUGS (5)
  1. ASPIRIN [Suspect]
     Indication: HEADACHE
     Dosage: UNIT DOSE: 325 MG
     Route: 048
     Dates: start: 19670101
  2. ASPIRIN [Suspect]
     Indication: PROPHYLAXIS
     Route: 048
  3. LISINOPRIL [Concomitant]
  4. COLD MD [Concomitant]
  5. PURITAN PRIDE ABC PLUS SENIOR [Concomitant]

REACTIONS (4)
  - ABDOMINAL PAIN UPPER [None]
  - BLOOD POTASSIUM INCREASED [None]
  - RENAL CYST [None]
  - VOMITING [None]
